FAERS Safety Report 9144314 (Version 3)
Quarter: 2013Q3

REPORT INFORMATION
  Report Type: Report from Study
  Country: CA (occurrence: CA)
  Receive Date: 20130306
  Receipt Date: 20130926
  Transmission Date: 20140515
  Serious: Yes (Other)
  Sender: FDA-Public Use
  Company Number: CA-ELI_LILLY_AND_COMPANY-CA201302009183

PATIENT
  Age: 70 Year
  Sex: Female
  Weight: 74 kg

DRUGS (14)
  1. TERIPARATIDE [Suspect]
     Indication: OSTEOPOROSIS
     Dosage: 20 UG, QD
     Route: 058
     Dates: start: 20120802, end: 201211
  2. SYNTHROID [Concomitant]
     Dosage: 0.05 MG, UNKNOWN
  3. PROGRAF [Concomitant]
     Dosage: 2 MG, BID
  4. AZATHIOPRINE [Concomitant]
  5. PRAVASTATIN [Concomitant]
     Dosage: 40 MG, QD
  6. PANTOLOC                           /01263204/ [Concomitant]
  7. LOSARTAN/HYDROCHLOORTHIAZIDE [Concomitant]
     Dosage: UNK
     Dates: end: 201211
  8. ALLOPURINOL [Concomitant]
  9. BISOPROLOL [Concomitant]
     Dosage: 2.5 MG, QD
  10. CARBOCAL D [Concomitant]
  11. PLAVIX [Concomitant]
     Dosage: 75 MG, UNKNOWN
  12. IMURAN [Concomitant]
  13. ANTURAN [Concomitant]
     Dosage: 100 MG, BID
  14. CENTRUM [Concomitant]

REACTIONS (2)
  - Renal cancer [Recovered/Resolved]
  - Renal failure acute [Unknown]
